FAERS Safety Report 8588752-0 (Version None)
Quarter: 2012Q3

REPORT INFORMATION
  Report Type: 
  Country: None (occurrence: None)
  Receive Date: 20120813
  Receipt Date: 20120809
  Transmission Date: 20120928
  Serious: Yes (Death, Hospitalization, Other)
  Sender: FDA-Public Use
  Company Number: PHHY2010BR88690

PATIENT
  Sex: Male

DRUGS (6)
  1. DIOVAN [Suspect]
     Indication: CARDIAC DISORDER
     Dosage: 160 MG,
  2. ISOSORBIDE MONONITRATE [Suspect]
     Indication: CARDIAC DISORDER
     Dosage: 1 DF, IN THE MORNING
     Dates: end: 20100101
  3. IBRIO [Suspect]
     Indication: RENAL DISORDER
     Dosage: 1 DF, DAILY
     Dates: start: 20110501
  4. ASPIRIN [Suspect]
     Indication: BLOOD DISORDER
     Dosage: 1 DF, DAILY AFTER THE LUNCH
     Dates: start: 20090101, end: 20110101
  5. DIOVAN [Suspect]
     Dosage: 1 DF (80 MG) DAILY
     Dates: start: 20080101
  6. ASPIRIN [Suspect]
     Indication: CARDIAC DISORDER
     Dosage: 81 MG
     Dates: start: 20110101

REACTIONS (9)
  - MULTI-ORGAN FAILURE [None]
  - FATIGUE [None]
  - COUGH [None]
  - DECREASED APPETITE [None]
  - BLOOD PRESSURE DECREASED [None]
  - BLOOD CHOLESTEROL ABNORMAL [None]
  - CARDIO-RESPIRATORY ARREST [None]
  - GASTRIC DISORDER [None]
  - PNEUMONIA [None]
